FAERS Safety Report 6483540-3 (Version None)
Quarter: 2009Q4

REPORT INFORMATION
  Report Type: 
  Country: None (occurrence: None)
  Receive Date: 20091209
  Receipt Date: 20091203
  Transmission Date: 20100525
  Serious: Yes (Life-Threatening, Hospitalization)
  Sender: FDA-Public Use
  Company Number: TR-SANOFI-AVENTIS-2009SA006833

PATIENT

DRUGS (1)
  1. CLEXANE [Suspect]
     Route: 058

REACTIONS (4)
  - ANGIOEDEMA [None]
  - HEPARIN-INDUCED THROMBOCYTOPENIA [None]
  - LIVER INJURY [None]
  - PRODUCT QUALITY ISSUE [None]
